FAERS Safety Report 4323283-5 (Version None)
Quarter: 2004Q1

REPORT INFORMATION
  Report Type: 
  Country: None (occurrence: None)
  Receive Date: 20040322
  Receipt Date: 20040304
  Transmission Date: 20041129
  Serious: Yes (Hospitalization)
  Sender: FDA-Public Use
  Company Number: S04-GER-01073-01

PATIENT
  Age: 62 Year
  Sex: Female

DRUGS (14)
  1. CIPRAMIL (CITALOPRAM HYDROBROMIDE) [Suspect]
     Indication: ANXIETY
     Dosage: 40 MG QD PO
     Route: 048
     Dates: start: 20030617, end: 20030816
  2. CIPRAMIL (CITALOPRAM HYDROBROMIDE) [Suspect]
     Indication: DEPRESSION
     Dosage: 40 MG QD PO
     Route: 048
     Dates: start: 20030617, end: 20030816
  3. CIPRAMIL (CITALOPRAM HYDROBROMIDE) [Suspect]
     Indication: ANXIETY
     Dosage: 30 MG QD PO
     Route: 048
     Dates: start: 20030817, end: 20030827
  4. CIPRAMIL (CITALOPRAM HYDROBROMIDE) [Suspect]
     Indication: DEPRESSION
     Dosage: 30 MG QD PO
     Route: 048
     Dates: start: 20030817, end: 20030827
  5. CIPRAMIL (CITALOPRAM HYDROBROMIDE) [Suspect]
     Indication: ANXIETY
     Dosage: 20 MG QD PO
     Route: 048
     Dates: start: 20030607, end: 20030611
  6. CIPRAMIL (CITALOPRAM HYDROBROMIDE) [Suspect]
     Indication: DEPRESSION
     Dosage: 20 MG QD PO
     Route: 048
     Dates: start: 20030607, end: 20030611
  7. CIPRAMIL (CITALOPRAM HYDROBROMIDE) [Suspect]
     Indication: ANXIETY
     Dosage: 30 MG QD PO
     Route: 048
     Dates: start: 20030612, end: 20030616
  8. CIPRAMIL (CITALOPRAM HYDROBROMIDE) [Suspect]
     Indication: DEPRESSION
     Dosage: 30 MG QD PO
     Route: 048
     Dates: start: 20030612, end: 20030616
  9. REMIFEMIN (CIMICIFUGA RACEMOSA ROOT) [Concomitant]
  10. JODID (POTASSIUM IODIDE) [Concomitant]
  11. ZOCOR [Concomitant]
  12. ISCOVER (CLOPIDOGREL SULFATE) [Concomitant]
  13. CALCIUM [Concomitant]
  14. MELPERON ^CT-ARZNEIMITTEL^ (MELPERONE HYDROCHLORIDE) [Concomitant]

REACTIONS (2)
  - HEADACHE [None]
  - HYPONATRAEMIA [None]
